FAERS Safety Report 7540896-8 (Version None)
Quarter: 2011Q2

REPORT INFORMATION
  Report Type: 
  Country: None (occurrence: None)
  Receive Date: 20110610
  Receipt Date: 20110603
  Transmission Date: 20111010
  Serious: Yes (Other)
  Sender: FDA-Public Use
  Company Number: IE-PFIZER INC-2011088319

PATIENT
  Age: 9 Year
  Sex: Male
  Weight: 45 kg

DRUGS (6)
  1. NOVOSEVEN [Concomitant]
     Indication: PROPHYLAXIS
     Dosage: 5 MG AS DAILY DOSE
     Route: 042
     Dates: start: 20100129, end: 20110321
  2. BENEFIX [Suspect]
     Indication: FACTOR IX DEFICIENCY
     Dosage: ON AND OFF WITH UNKNOWN DOSE/FREQUENCY SINCE THE DIAGNOSIS IN 2002
     Dates: start: 20020101
  3. NOVOSEVEN [Concomitant]
     Indication: HAEMORRHAGE
     Dosage: 5 MG, UNK
     Route: 042
     Dates: start: 20110323
  4. BENEFIX [Suspect]
     Dosage: 12000 IU, UNK
     Route: 042
     Dates: start: 20110321
  5. NOVOSEVEN [Concomitant]
     Indication: FACTOR IX INHIBITION
     Dosage: VARYING DOSES OVER THE LAST 7-8 YEARS
  6. BENEFIX [Suspect]
     Dosage: 12000 IU, UNK
     Route: 042
     Dates: start: 20110321

REACTIONS (3)
  - HYPERSENSITIVITY [None]
  - FACTOR IX INHIBITION [None]
  - URTICARIA [None]
